FAERS Safety Report 4995349-8 (Version None)
Quarter: 2006Q2

REPORT INFORMATION
  Report Type: 
  Country: None (occurrence: None)
  Receive Date: 20060508
  Receipt Date: 20060425
  Transmission Date: 20061013
  Serious: Yes (Hospitalization)
  Sender: FDA-Public Use
  Company Number: US-MERCK-0604USA04034

PATIENT
  Age: 79 Year
  Sex: Female
  Weight: 82 kg

DRUGS (9)
  1. VIOXX [Suspect]
     Indication: ARTHRITIS
     Route: 048
     Dates: start: 19990801, end: 20040901
  2. XANAX [Concomitant]
     Route: 065
  3. NORVASC [Concomitant]
     Route: 065
  4. DETROL [Concomitant]
     Route: 065
  5. ZOCOR [Concomitant]
     Route: 065
  6. FOSAMAX [Concomitant]
     Route: 065
  7. NITRO-DUR [Concomitant]
     Route: 065
  8. PREVACID [Concomitant]
     Route: 065
  9. TYLENOL (CAPLET) [Concomitant]
     Route: 065

REACTIONS (2)
  - ANXIETY [None]
  - CEREBROVASCULAR ACCIDENT [None]
